FAERS Safety Report 15767993 (Version 1)
Quarter: 2018Q4

REPORT INFORMATION
  Report Type: Spontaneous
  Country: US (occurrence: US)
  Receive Date: 20181227
  Receipt Date: 20181227
  Transmission Date: 20190205
  Serious: Yes (Other)
  Sender: FDA-Public Use
  Company Number: US-TEVA-2018-US-992718

PATIENT
  Age: 21 Year
  Sex: Female

DRUGS (4)
  1. URSODIOL. [Suspect]
     Active Substance: URSODIOL
     Route: 048
  2. BETAMETHASONE. [Suspect]
     Active Substance: BETAMETHASONE
     Indication: CHOLESTASIS OF PREGNANCY
     Route: 065
  3. RIFAMPIN. [Suspect]
     Active Substance: RIFAMPIN
     Indication: CHOLESTASIS OF PREGNANCY
     Dosage: 600 MILLIGRAM DAILY;
     Route: 048
  4. URSODIOL. [Suspect]
     Active Substance: URSODIOL
     Indication: CHOLESTASIS OF PREGNANCY
     Dosage: 900 MILLIGRAM DAILY; 300MG THREE TIMES DAILY; LATER IT WAS INCREASED TO 4 TIMES DAILY AFTER ONE WEEK
     Route: 048

REACTIONS (3)
  - Drug ineffective [Unknown]
  - Normal newborn [Unknown]
  - Maternal exposure during pregnancy [Unknown]
